FAERS Safety Report 23117297 (Version 3)
Quarter: 2023Q4

REPORT INFORMATION
  Report Type: Report from Study
  Country: US (occurrence: US)
  Receive Date: 20231027
  Receipt Date: 20231117
  Transmission Date: 20240110
  Serious: Yes (Death, Other)
  Sender: FDA-Public Use
  Company Number: US-JAZZ PHARMACEUTICALS-2022-US-022849

PATIENT
  Age: 52 Year
  Sex: Female

DRUGS (8)
  1. XYWAV [Suspect]
     Active Substance: CALCIUM OXYBATE\MAGNESIUM OXYBATE\POTASSIUM OXYBATE\SODIUM OXYBATE
     Indication: Hypersomnia
     Dosage: 3 GRAM, BID
     Dates: start: 20220606
  2. XYWAV [Suspect]
     Active Substance: CALCIUM OXYBATE\MAGNESIUM OXYBATE\POTASSIUM OXYBATE\SODIUM OXYBATE
     Dosage: 4.5 GRAM, BID
     Route: 048
  3. .GAMMA.-AMINOBUTYRIC ACID [Concomitant]
     Active Substance: .GAMMA.-AMINOBUTYRIC ACID
     Indication: Product used for unknown indication
     Dosage: UNK
     Dates: start: 20210609
  4. OMEGA 3 COMPLETE [Concomitant]
     Dosage: UNK
     Dates: start: 20220509
  5. FERROUS SULFATE [Concomitant]
     Active Substance: FERROUS SULFATE
     Dosage: 65 MILLIGRAM
     Route: 048
  6. SUNOSI [Concomitant]
     Active Substance: SOLRIAMFETOL
     Dosage: 1 TABLET, QD
     Route: 048
  7. ERGOCALCIFEROL [Concomitant]
     Active Substance: ERGOCALCIFEROL
     Dosage: 1 CAPSULE
     Route: 048
  8. RITALIN [Concomitant]
     Active Substance: METHYLPHENIDATE HYDROCHLORIDE
     Route: 048

REACTIONS (14)
  - Completed suicide [Fatal]
  - Overdose [Unknown]
  - Mood altered [Recovering/Resolving]
  - Gallbladder disorder [Recovered/Resolved]
  - Abdominal discomfort [Recovered/Resolved]
  - Exposure to fungus [Recovering/Resolving]
  - Nasal discomfort [Recovering/Resolving]
  - Stress [Recovering/Resolving]
  - Paraesthesia [Recovered/Resolved]
  - Brain fog [Recovering/Resolving]
  - Dry mouth [Recovered/Resolved]
  - Paranoia [Unknown]
  - Road traffic accident [Unknown]
  - Product administration interrupted [Unknown]

NARRATIVE: CASE EVENT DATE: 20231023
